FAERS Safety Report 7641846-6 (Version None)
Quarter: 2011Q3

REPORT INFORMATION
  Report Type: 
  Country: None (occurrence: None)
  Receive Date: 20110722
  Receipt Date: 20110707
  Transmission Date: 20111222
  Serious: Yes (Death, Hospitalization)
  Sender: FDA-Public Use
  Company Number: AUR-APL-2011-04162

PATIENT
  Age: 29 Year
  Sex: Male

DRUGS (3)
  1. CARVEDILOL [Suspect]
     Indication: PRODUCT USED FOR UNKNOWN INDICATION
     Dosage: ORAL
     Route: 048
     Dates: end: 20080101
  2. OLANZAPINE [Suspect]
     Indication: PRODUCT USED FOR UNKNOWN INDICATION
     Route: 048
     Dates: end: 20080101
  3. BUPROPION HCL [Suspect]
     Indication: PRODUCT USED FOR UNKNOWN INDICATION
     Dosage: ORAL
     Route: 048
     Dates: end: 20080101

REACTIONS (17)
  - DRUG INEFFECTIVE [None]
  - BLOOD GLUCOSE INCREASED [None]
  - BLOOD CALCIUM DECREASED [None]
  - COMPLETED SUICIDE [None]
  - CARDIAC ARREST [None]
  - BODY TEMPERATURE DECREASED [None]
  - PUPILLARY REFLEX IMPAIRED [None]
  - INTENTIONAL DRUG MISUSE [None]
  - TOXICITY TO VARIOUS AGENTS [None]
  - MUSCLE RIGIDITY [None]
  - ACTIVATED PARTIAL THROMBOPLASTIN TIME PROLONGED [None]
  - UNRESPONSIVE TO STIMULI [None]
  - DYSPNOEA [None]
  - INTERNATIONAL NORMALISED RATIO DECREASED [None]
  - CYANOSIS [None]
  - RESPIRATION ABNORMAL [None]
  - PO2 INCREASED [None]
